FAERS Safety Report 6983829-5 (Version None)
Quarter: 2010Q3

REPORT INFORMATION
  Report Type: 
  Country: None (occurrence: None)
  Receive Date: 20100914
  Receipt Date: 20090205
  Transmission Date: 20110219
  Serious: No
  Sender: FDA-Public Use
  Company Number: US-WYE-H08146309

PATIENT
  Age: 6 Year
  Sex: Male
  Weight: 22.7 kg

DRUGS (2)
  1. CHILDREN'S ADVIL [Suspect]
     Indication: ANALGESIC THERAPY
     Dosage: 2 TEASPOONS X 1
     Route: 048
     Dates: start: 20090205, end: 20090205
  2. CHILDREN'S ADVIL [Suspect]
     Indication: PYREXIA

REACTIONS (2)
  - EYE DISORDER [None]
  - FLUSHING [None]
